FAERS Safety Report 21988555 (Version 1)
Quarter: 2023Q1

REPORT INFORMATION
  Report Type: Other
  Country: GR (occurrence: GR)
  Receive Date: 20230214
  Receipt Date: 20230214
  Transmission Date: 20230417
  Serious: Yes (Hospitalization)
  Sender: FDA-Public Use
  Company Number: GR-BoehringerIngelheim-2019-BI-024929

PATIENT
  Age: 65 Year
  Sex: Male

DRUGS (1)
  1. ALTEPLASE [Suspect]
     Active Substance: ALTEPLASE
     Indication: Thrombosis
     Dosage: 0.9 MG/KG OF BODY WEIGHT
     Route: 042

REACTIONS (4)
  - Haemorrhagic transformation stroke [Unknown]
  - General physical health deterioration [Unknown]
  - Aphasia [Unknown]
  - Hemiplegia [Unknown]
